FAERS Safety Report 17640233 (Version 3)
Quarter: 2020Q2

REPORT INFORMATION
  Report Type: Spontaneous
  Country: FR (occurrence: FR)
  Receive Date: 20200408
  Receipt Date: 20200422
  Transmission Date: 20200713
  Serious: Yes (Other)
  Sender: FDA-Public Use
  Company Number: FR-CELLTRION INC.-2020FR021174

PATIENT

DRUGS (4)
  1. RITUXIMAB (UNKNOWN) [Suspect]
     Active Substance: RITUXIMAB
     Indication: DEMYELINATION
     Dosage: 1 G AT DAY 0 AND DAY 15
     Route: 042
  2. RITUXIMAB (UNKNOWN) [Suspect]
     Active Substance: RITUXIMAB
     Dosage: 1 G EVERY 6 MONTHS
     Route: 042
  3. TOCILIZUMAB. [Concomitant]
     Active Substance: TOCILIZUMAB
     Route: 065
  4. RITUXIMAB (UNKNOWN) [Suspect]
     Active Substance: RITUXIMAB
     Indication: ANTI-MYELIN-ASSOCIATED GLYCOPROTEIN ASSOCIATED POLYNEUROPATHY
     Dosage: UNK, CYCLIC (3 CYCLES)
     Route: 065

REACTIONS (5)
  - Neutropenia [Unknown]
  - Off label use [Unknown]
  - Intentional product use issue [Unknown]
  - Anti-myelin-associated glycoprotein associated polyneuropathy [Unknown]
  - Disease recurrence [Unknown]
